FAERS Safety Report 9688236 (Version 1)
Quarter: 2013Q4

REPORT INFORMATION
  Report Type: Spontaneous
  Country: US (occurrence: US)
  Receive Date: 20131114
  Receipt Date: 20131114
  Transmission Date: 20140711
  Serious: Yes (Hospitalization)
  Sender: FDA-Public Use
  Company Number: US-NOVOPROD-391811

PATIENT
  Age: 18 Year
  Sex: Male

DRUGS (4)
  1. NOVOLOG [Suspect]
     Indication: PRODUCT USED FOR UNKNOWN INDICATION
     Dosage: 15 U, QD
     Route: 058
  2. INVOKANA [Suspect]
     Indication: TYPE 2 DIABETES MELLITUS
     Dosage: 300 MG, QD
     Route: 048
  3. LANTUS [Suspect]
     Indication: PRODUCT USED FOR UNKNOWN INDICATION
     Dosage: 30 U, QD
  4. ONGLYZA [Suspect]
     Indication: PRODUCT USED FOR UNKNOWN INDICATION

REACTIONS (3)
  - Dehydration [Not Recovered/Not Resolved]
  - Urinary tract infection [Not Recovered/Not Resolved]
  - Kidney infection [Not Recovered/Not Resolved]
